FAERS Safety Report 5067667-9 (Version None)
Quarter: 2006Q3

REPORT INFORMATION
  Report Type: 
  Country: None (occurrence: None)
  Receive Date: 20060728
  Receipt Date: 20060711
  Transmission Date: 20061208
  Serious: Yes (Other)
  Sender: FDA-Public Use
  Company Number: US200607002367

PATIENT
  Age: 3 Year
  Sex: Male

DRUGS (2)
  1. PROZAC [Suspect]
     Dates: start: 20060101
  2. AMITRIPTYLINE (AMITRIPTYLINE) [Concomitant]

REACTIONS (2)
  - POISONING DELIBERATE [None]
  - VICTIM OF CHILD ABUSE [None]
